FAERS Safety Report 6038298-9 (Version None)
Quarter: 2009Q1

REPORT INFORMATION
  Report Type: 
  Country: None (occurrence: None)
  Receive Date: 20090115
  Receipt Date: 20090109
  Transmission Date: 20090719
  Serious: Yes (Hospitalization, Other)
  Sender: FDA-Public Use
  Company Number: PHHO2008JP15262

PATIENT
  Sex: Male
  Weight: 70 kg

DRUGS (8)
  1. EXELON [Suspect]
     Indication: DEMENTIA ALZHEIMER'S TYPE
     Dosage: 4.5 MG, UNK
     Route: 062
     Dates: start: 20081213, end: 20081223
  2. LASIX [Suspect]
     Dosage: UNK
     Dates: start: 20081218
  3. ALDACTONE [Suspect]
     Dosage: UNK
     Dates: start: 20081218
  4. NORVASC [Concomitant]
     Indication: HYPERTENSION
     Dosage: 5 MG, UNK
     Route: 048
     Dates: start: 20030401
  5. EUGLUCON [Concomitant]
     Indication: DIABETES MELLITUS
     Dosage: UNK
     Dates: start: 20030331
  6. RABEPRAZOLE SODIUM [Concomitant]
     Indication: GASTRITIS
     Dosage: UNK
     Dates: start: 20061113
  7. GASTROM [Concomitant]
     Indication: GASTRITIS
     Dosage: UNK
     Dates: start: 20060106
  8. SECTOR [Concomitant]
     Indication: OSTEOARTHRITIS
     Dosage: UNK
     Dates: start: 20050101

REACTIONS (11)
  - ATRIAL FIBRILLATION [None]
  - CEREBRAL INFARCTION [None]
  - COMA [None]
  - DEHYDRATION [None]
  - DEMENTIA ALZHEIMER'S TYPE [None]
  - DIABETIC NEPHROPATHY [None]
  - DISEASE PROGRESSION [None]
  - FALL [None]
  - OEDEMA PERIPHERAL [None]
  - PROTEIN URINE PRESENT [None]
  - SOMNOLENCE [None]
